FAERS Safety Report 25963831 (Version 1)
Quarter: 2025Q4

REPORT INFORMATION
  Report Type: Report from Study
  Country: EU (occurrence: EU)
  Receive Date: 20251027
  Receipt Date: 20251027
  Transmission Date: 20260117
  Serious: Yes (Hospitalization)
  Sender: ABBVIE
  Company Number: EU-ABBVIE-6516166

PATIENT
  Age: 32 Year
  Sex: Male

DRUGS (1)
  1. RINVOQ [Suspect]
     Active Substance: UPADACITINIB
     Indication: Neurodermatitis
     Dosage: PROLONGED-RELEASE TABLET
     Route: 048
     Dates: start: 202501, end: 2025

REACTIONS (5)
  - Eye infection bacterial [Recovering/Resolving]
  - Eye infection viral [Recovering/Resolving]
  - Adverse drug reaction [Unknown]
  - Eye infection viral [Recovered/Resolved]
  - Product use in unapproved indication [Unknown]

NARRATIVE: CASE EVENT DATE: 20250101
